FAERS Safety Report 8906352 (Version 1)
Quarter: 2012Q4

REPORT INFORMATION
  Report Type: Spontaneous
  Country: US (occurrence: None)
  Receive Date: 20121109
  Receipt Date: 20121109
  Transmission Date: 20130627
  Serious: No
  Sender: FDA-Public Use
  Company Number: None

PATIENT
  Age: 64 Year
  Sex: Male
  Weight: 78.02 kg

DRUGS (1)
  1. ACYCLOVIR [Suspect]
     Route: 048
     Dates: start: 20121107, end: 20121108

REACTIONS (3)
  - Dysgeusia [None]
  - Product coating issue [None]
  - Product quality issue [None]
